FAERS Safety Report 9775291 (Version 1)
Quarter: 2013Q4

REPORT INFORMATION
  Report Type: Spontaneous
  Country: US (occurrence: US)
  Receive Date: 20131220
  Receipt Date: 20131220
  Transmission Date: 20140711
  Serious: No
  Sender: FDA-Public Use
  Company Number: US-GALDERMA-US13003190

PATIENT
  Age: 32 Year
  Sex: Female

DRUGS (4)
  1. MIRVASO (BRIMONIDINE) TOPICAL GEL, 0.33% [Suspect]
     Indication: ROSACEA
     Dosage: 0.33%
     Route: 061
     Dates: start: 20131002, end: 20131004
  2. SEASONIQUE [Concomitant]
     Indication: CONTRACEPTION
     Route: 048
     Dates: start: 201301
  3. CETAPHIL GENTLE SKIN CLEANSER [Concomitant]
     Indication: THERAPEUTIC SKIN CARE TOPICAL
     Route: 061
  4. ROSADAN (METRONIDAZOLE) TOPICAL CREAM [Concomitant]
     Indication: ROSACEA
     Route: 061

REACTIONS (5)
  - Feeling hot [Recovered/Resolved]
  - Condition aggravated [Recovered/Resolved]
  - Skin sensitisation [Recovered/Resolved]
  - Rebound effect [Recovered/Resolved]
  - Erythema [Recovered/Resolved]
